FAERS Safety Report 5101574-8 (Version None)
Quarter: 2006Q3

REPORT INFORMATION
  Report Type: 
  Country: None (occurrence: None)
  Receive Date: 20060906
  Receipt Date: 20060824
  Transmission Date: 20061208
  Serious: Yes (Other)
  Sender: FDA-Public Use
  Company Number: 2006103357

PATIENT
  Age: 73 Year
  Sex: Female
  Weight: 70 kg

DRUGS (6)
  1. ATORVASTATIN CALCIUM [Suspect]
     Indication: DRUG USE FOR UNKNOWN INDICATION
     Dosage: 20 MG (20 MG, 1 IN 1 D)
     Dates: start: 20041204, end: 20060616
  2. CINACALCET HYDROCHLORIDE (CINACALCET HYDROCHLORIDE) [Suspect]
     Indication: HYPERPARATHYROIDISM SECONDARY
     Dosage: 30 MG (30 MG, 1 IN 1 D), ORAL
     Route: 048
     Dates: start: 20060413, end: 20060610
  3. SODIUM POLYSTYRENE SULFONATE [Concomitant]
  4. ZOPICLONE (ZOPICLONE) [Concomitant]
  5. OMEPRAZOLE [Concomitant]
  6. ALLOTHER THERAPEUTIC PRODUCTS [Suspect]
     Indication: DRUG USE FOR UNKNOWN INDICATION

REACTIONS (7)
  - ATTENTION-SEEKING BEHAVIOUR [None]
  - CONVERSION DISORDER [None]
  - HAEMODIALYSIS [None]
  - HEPATITIS [None]
  - HYPERPARATHYROIDISM SECONDARY [None]
  - SELF-MEDICATION [None]
  - TREATMENT NONCOMPLIANCE [None]
